FAERS Safety Report 19889660 (Version 1)
Quarter: 2021Q3

REPORT INFORMATION
  Report Type: Report from Study
  Country: PK (occurrence: PK)
  Receive Date: 20210928
  Receipt Date: 20210928
  Transmission Date: 20211014
  Serious: Yes (Death, Other)
  Sender: FDA-Public Use
  Company Number: NVSC2021PK206731

PATIENT
  Sex: Male
  Weight: 20 kg

DRUGS (2)
  1. QUETIA [Concomitant]
     Active Substance: QUETIAPINE
     Indication: PRODUCT USED FOR UNKNOWN INDICATION
     Dosage: UNK
     Route: 065
  2. TASIGNA [Suspect]
     Active Substance: NILOTINIB
     Indication: PHILADELPHIA POSITIVE CHRONIC MYELOID LEUKAEMIA
     Dosage: 150 MG, BID
     Route: 048
     Dates: start: 20190807

REACTIONS (6)
  - Aspiration [Unknown]
  - Philadelphia positive chronic myeloid leukaemia [Fatal]
  - Ischaemic stroke [Unknown]
  - Chest pain [Unknown]
  - Sepsis [Unknown]
  - Malignant neoplasm progression [Fatal]
